FAERS Safety Report 10222075 (Version 2)
Quarter: 2014Q2

REPORT INFORMATION
  Report Type: Spontaneous
  Country: BR (occurrence: BR)
  Receive Date: 20140606
  Receipt Date: 20140606
  Transmission Date: 20141212
  Serious: No
  Sender: FDA-Public Use
  Company Number: BR-BIOMARINAP-BR-2014-102704

PATIENT
  Age: 9 Year
  Sex: Female
  Weight: 13.2 kg

DRUGS (1)
  1. NAGLAZYME [Suspect]
     Indication: MUCOPOLYSACCHARIDOSIS VI
     Dosage: 15 MG, QW
     Route: 041
     Dates: start: 20080918

REACTIONS (5)
  - Acute sinusitis [Recovered/Resolved]
  - Pharyngeal oedema [Unknown]
  - Hyperthermia [Unknown]
  - Increased bronchial secretion [Unknown]
  - Malaise [Unknown]
